FAERS Safety Report 18243143 (Version 2)
Quarter: 2020Q4

REPORT INFORMATION
  Report Type: Spontaneous
  Country: US (occurrence: US)
  Receive Date: 20200908
  Receipt Date: 20201002
  Transmission Date: 20210113
  Serious: Yes (Hospitalization, Other)
  Sender: FDA-Public Use
  Company Number: US-JNJFOC-A-NJ2019-196864

PATIENT
  Age: 76 Year
  Sex: Female
  Weight: 69.92 kg

DRUGS (3)
  1. ELIQUIS [Concomitant]
     Active Substance: APIXABAN
  2. ADEMPAS [Suspect]
     Active Substance: RIOCIGUAT
     Indication: PRODUCT USED FOR UNKNOWN INDICATION
     Route: 065
  3. OPSUMIT [Suspect]
     Active Substance: MACITENTAN
     Indication: PULMONARY ARTERIAL HYPERTENSION
     Dosage: 10 MG, QD
     Route: 048

REACTIONS (28)
  - Epistaxis [Unknown]
  - Hepatic enzyme increased [Unknown]
  - Cardiac pacemaker insertion [Unknown]
  - Renal failure [Unknown]
  - Atrial fibrillation [Unknown]
  - Hypotension [Unknown]
  - Syncope [Recovered/Resolved]
  - Fungal infection [Unknown]
  - Fall [Unknown]
  - Transfusion [Unknown]
  - Anaemia [Unknown]
  - Thrombosis [Unknown]
  - Illness [Unknown]
  - Head injury [Unknown]
  - Internal haemorrhage [Unknown]
  - Pneumonia [Unknown]
  - Haemorrhage [Unknown]
  - Urinary tract infection [Unknown]
  - Blood iron decreased [Not Recovered/Not Resolved]
  - Unevaluable event [Unknown]
  - Dizziness [Unknown]
  - Loss of consciousness [Unknown]
  - Hospitalisation [Unknown]
  - Product dose omission issue [Unknown]
  - Productive cough [Unknown]
  - Mitral valve incompetence [Unknown]
  - Hepatic enzyme abnormal [Unknown]
  - Dyspnoea [Unknown]

NARRATIVE: CASE EVENT DATE: 201903
